FAERS Safety Report 5215393-5 (Version None)
Quarter: 2007Q1

REPORT INFORMATION
  Report Type: 
  Country: None (occurrence: None)
  Receive Date: 20070116
  Receipt Date: 20070105
  Transmission Date: 20070707
  Serious: Yes (Life-Threatening, Hospitalization)
  Sender: FDA-Public Use
  Company Number: 151538USA

PATIENT
  Age: 38 Year
  Sex: Male

DRUGS (3)
  1. PIMOZIDE TABLETS (PIMOZIDE) [Suspect]
     Dosage: 2 MG (1 MG, 2 IN 1 D) ORAL
     Route: 048
     Dates: start: 20061201, end: 20061203
  2. HALOPERIDOL [Suspect]
     Dosage: 3 MG (3 MG, 1 IN 1 D)
     Dates: start: 20061201, end: 20061203
  3. SALICYLAMIDE [Concomitant]

REACTIONS (10)
  - BLOOD CREATINE PHOSPHOKINASE INCREASED [None]
  - BLOOD PRESSURE INCREASED [None]
  - CONVULSION [None]
  - DECREASED APPETITE [None]
  - DEPRESSED LEVEL OF CONSCIOUSNESS [None]
  - HEART RATE INCREASED [None]
  - NEUROLEPTIC MALIGNANT SYNDROME [None]
  - OCULOGYRATION [None]
  - TREATMENT NONCOMPLIANCE [None]
  - WHITE BLOOD CELL COUNT INCREASED [None]
